FAERS Safety Report 5571114-8 (Version None)
Quarter: 2007Q4

REPORT INFORMATION
  Report Type: 
  Country: None (occurrence: None)
  Receive Date: 20071221
  Receipt Date: 20071217
  Transmission Date: 20080405
  Serious: Yes (Hospitalization)
  Sender: FDA-Public Use
  Company Number: US-MERCK-0704USA01517

PATIENT
  Age: 68 Year
  Sex: Female

DRUGS (3)
  1. FOSAMAX [Suspect]
     Indication: OSTEOPOROSIS
     Route: 048
     Dates: start: 20000927, end: 20010101
  2. FOSAMAX [Suspect]
     Route: 048
     Dates: start: 20010327, end: 20030101
  3. FOSAMAX [Suspect]
     Route: 048
     Dates: end: 20040101

REACTIONS (28)
  - ANAEMIA [None]
  - ANXIETY [None]
  - ARTHROPATHY [None]
  - CARDIAC MURMUR [None]
  - CHEST PAIN [None]
  - DEEP VEIN THROMBOSIS [None]
  - DEPRESSION [None]
  - DEVICE FAILURE [None]
  - DISLOCATION OF JOINT PROSTHESIS [None]
  - DIZZINESS [None]
  - DRUG ADMINISTRATION ERROR [None]
  - DYSPNOEA [None]
  - FALL [None]
  - GLOSSITIS [None]
  - GLOSSODYNIA [None]
  - HEAD INJURY [None]
  - INJURY [None]
  - NECK INJURY [None]
  - OSTEOMYELITIS [None]
  - OSTEONECROSIS [None]
  - PNEUMONIA [None]
  - RIB FRACTURE [None]
  - SPINAL CORD INJURY [None]
  - STAPHYLOCOCCAL INFECTION [None]
  - TACHYCARDIA [None]
  - TONGUE DRY [None]
  - UPPER LIMB FRACTURE [None]
  - WHITE BLOOD CELL COUNT INCREASED [None]
